FAERS Safety Report 20171573 (Version 2)
Quarter: 2021Q4

REPORT INFORMATION
  Report Type: Spontaneous
  Country: KR (occurrence: KR)
  Receive Date: 20211210
  Receipt Date: 20211214
  Transmission Date: 20220303
  Serious: Yes (Death, Hospitalization, Other)
  Sender: FDA-Public Use
  Company Number: KR-PFIZER INC-202101695170

PATIENT
  Age: 86 Year
  Sex: Male
  Weight: 153 kg

DRUGS (8)
  1. VYNDAMAX [Suspect]
     Active Substance: TAFAMIDIS
     Indication: Cardiac amyloidosis
     Dosage: 61 MG, ONCE A DAY
     Route: 048
     Dates: start: 20210824
  2. ENTRESTO [Concomitant]
     Active Substance: SACUBITRIL\VALSARTAN
     Indication: Left ventricular failure
     Dosage: 100 MG, TWICE A DAY
     Dates: start: 20210612
  3. NEBIVOLOL [Concomitant]
     Active Substance: NEBIVOLOL
     Indication: Left ventricular failure
     Dosage: 1.25 MG, ONCE A DAY
     Dates: start: 20181019
  4. APIXABAN [Concomitant]
     Active Substance: APIXABAN
     Indication: Atrial fibrillation
     Dosage: 5 MG, TWICE A DAY
     Dates: start: 20210320
  5. MAGNESIUM HYDROXIDE [Concomitant]
     Active Substance: MAGNESIUM HYDROXIDE
     Indication: Constipation
     Dosage: 1500 MG, THREE TIMES A DAY
     Dates: start: 20210815
  6. FUROSEMIDE [Concomitant]
     Active Substance: FUROSEMIDE
     Indication: Left ventricular failure
     Dosage: 240 MG, THREE TIMES A DAY
     Dates: start: 20151006
  7. LINAGLIPTIN [Concomitant]
     Active Substance: LINAGLIPTIN
     Indication: Type 2 diabetes mellitus
     Dosage: 50 MG, ONCE A DAY
     Dates: start: 20180614
  8. ULTRACET [Concomitant]
     Active Substance: ACETAMINOPHEN\TRAMADOL HYDROCHLORIDE
     Indication: Spinal stenosis
     Dosage: 2 DF, TWICE A DAY
     Dates: start: 20171011

REACTIONS (8)
  - Sepsis [Fatal]
  - Acute kidney injury [Fatal]
  - Amyloidosis senile [Fatal]
  - Disease progression [Fatal]
  - Metabolic acidosis [Not Recovered/Not Resolved]
  - Oedema peripheral [Not Recovered/Not Resolved]
  - Dyspnoea [Not Recovered/Not Resolved]
  - Blood pressure decreased [Not Recovered/Not Resolved]

NARRATIVE: CASE EVENT DATE: 20211011
